FAERS Safety Report 15752069 (Version 2)
Quarter: 2020Q2

REPORT INFORMATION
  Report Type: Spontaneous
  Country: US (occurrence: US)
  Receive Date: 20181221
  Receipt Date: 20200417
  Transmission Date: 20200713
  Serious: Yes (Hospitalization, Other)
  Sender: FDA-Public Use
  Company Number: US-009507513-1812USA010616

PATIENT
  Sex: Male
  Weight: 74.83 kg

DRUGS (1)
  1. JANUVIA [Suspect]
     Active Substance: SITAGLIPTIN PHOSPHATE
     Indication: TYPE 2 DIABETES MELLITUS
     Dosage: 1 TABLET (100 MG) DAILY (ALSO REPORTED AS 2X DAILY
     Route: 048
     Dates: start: 20131121, end: 20160225

REACTIONS (6)
  - Intraocular pressure increased [Unknown]
  - Pancreatic carcinoma [Recovering/Resolving]
  - Pancreatitis [Recovered/Resolved]
  - Glaucoma [Not Recovered/Not Resolved]
  - Thrombosis [Not Recovered/Not Resolved]
  - Polypectomy [Unknown]

NARRATIVE: CASE EVENT DATE: 201508
